FAERS Safety Report 7033969-X (Version None)
Quarter: 2010Q4

REPORT INFORMATION
  Report Type: 
  Country: None (occurrence: None)
  Receive Date: 20101005
  Receipt Date: 20100921
  Transmission Date: 20110411
  Serious: Yes (Other)
  Sender: FDA-Public Use
  Company Number: 2010AP002054

PATIENT
  Age: 33 Year
  Sex: Female

DRUGS (2)
  1. TRAZODONE HYDROCHLORIDE [Suspect]
     Dosage: 50 MG
  2. VENLAFAXINE HCL [Suspect]
     Dosage: 225 MG

REACTIONS (2)
  - DRUG EXPOSURE DURING PREGNANCY [None]
  - PREMATURE LABOUR [None]
